FAERS Safety Report 18248403 (Version 1)
Quarter: 2020Q3

REPORT INFORMATION
  Report Type: Report from Study
  Country: FR (occurrence: FR)
  Receive Date: 20200909
  Receipt Date: 20200909
  Transmission Date: 20201103
  Serious: Yes (Hospitalization, Other)
  Sender: FDA-Public Use
  Company Number: FR-BRISTOL-MYERS SQUIBB COMPANY-BMS-2020-052023

PATIENT
  Age: 78 Year
  Sex: Male
  Weight: 101 kg

DRUGS (67)
  1. NIVOLUMAB [Suspect]
     Active Substance: NIVOLUMAB
     Dosage: 300 UNSPECIFIED DOSE, Q2WK
     Route: 065
     Dates: start: 20180905, end: 20180905
  2. NIVOLUMAB [Suspect]
     Active Substance: NIVOLUMAB
     Dosage: 300 UNSPECIFIED DOSE, Q2WK
     Route: 065
     Dates: start: 20190611, end: 20190611
  3. NIVOLUMAB [Suspect]
     Active Substance: NIVOLUMAB
     Dosage: 480 UNSPECIFIED DOSE, QMO
     Route: 065
     Dates: start: 20190918, end: 20190918
  4. NIVOLUMAB [Suspect]
     Active Substance: NIVOLUMAB
     Dosage: 310 MILLIGRAM, Q2WK
     Route: 065
  5. LEVOTHYROX [Concomitant]
     Active Substance: LEVOTHYROXINE
     Dosage: 125 MICROGRAM, QD
     Route: 048
     Dates: start: 20181109, end: 20181127
  6. FAZOL [ISOCONAZOLE NITRATE] [Concomitant]
     Indication: PSORIASIS
     Dosage: 1 APPLICATION, BID
     Route: 061
     Dates: start: 20180530, end: 20180630
  7. GLUCOPHAGE [Concomitant]
     Active Substance: METFORMIN HYDROCHLORIDE
     Indication: PRODUCT USED FOR UNKNOWN INDICATION
     Dosage: 500 MILLIGRAM, BID
     Route: 048
     Dates: start: 2016
  8. CACIT D3 [Concomitant]
     Active Substance: CALCIUM\CHOLECALCIFEROL
     Indication: PRODUCT USED FOR UNKNOWN INDICATION
     Dosage: 100 MILLIGRAM, QD
     Route: 048
     Dates: start: 20191121
  9. SOLUPRED [PREDNISOLONE] [Concomitant]
     Active Substance: PREDNISOLONE
     Indication: IMMUNE SYSTEM DISORDER
     Dosage: 10 MILLIGRAM, QD
     Route: 048
     Dates: start: 20200528
  10. SOLUPRED [PREDNISOLONE] [Concomitant]
     Active Substance: PREDNISOLONE
     Dosage: 8 MILLIGRAM, BID
     Dates: start: 20200617
  11. NIVOLUMAB [Suspect]
     Active Substance: NIVOLUMAB
     Indication: LUNG NEOPLASM MALIGNANT
     Dosage: 300 UNSPECIFIED DOSE, Q2WK
     Route: 065
     Dates: start: 20180613, end: 20180613
  12. NIVOLUMAB [Suspect]
     Active Substance: NIVOLUMAB
     Dosage: 300 UNSPECIFIED DOSE, Q2WK
     Route: 065
     Dates: start: 20180711, end: 20180711
  13. NIVOLUMAB [Suspect]
     Active Substance: NIVOLUMAB
     Dosage: 300 UNSPECIFIED DOSE, Q2WK
     Route: 065
     Dates: start: 20190527, end: 20190527
  14. NIVOLUMAB [Suspect]
     Active Substance: NIVOLUMAB
     Dosage: 270 UNSPECIFIED DOSE, Q2WK
     Route: 065
     Dates: start: 20190807, end: 20190807
  15. NIVOLUMAB [Suspect]
     Active Substance: NIVOLUMAB
     Dosage: 220 UNSPECIFIED DOSE, Q3WK
     Dates: start: 20200616, end: 20200616
  16. DECTANCYL [Concomitant]
     Active Substance: DEXAMETHASONE
     Indication: VOMITING
  17. XATRAL [Concomitant]
     Active Substance: ALFUZOSIN
     Indication: PRODUCT USED FOR UNKNOWN INDICATION
     Dosage: 10 MILLIGRAM
     Route: 048
     Dates: start: 20200617
  18. IPRATROPIUM [Concomitant]
     Active Substance: IPRATROPIUM
     Indication: BRONCHITIS
     Dosage: 3 ABSENT, QD
     Route: 048
     Dates: start: 20200713, end: 20200719
  19. NIVOLUMAB [Suspect]
     Active Substance: NIVOLUMAB
     Dosage: 310 UNSPECIFIED DOSE, Q2WK
     Route: 065
     Dates: start: 20181114, end: 20181114
  20. NIVOLUMAB [Suspect]
     Active Substance: NIVOLUMAB
     Dosage: 310 UNSPECIFIED DOSE, Q2WK
     Route: 065
     Dates: start: 20181212, end: 20181212
  21. NIVOLUMAB [Suspect]
     Active Substance: NIVOLUMAB
     Dosage: 310 UNSPECIFIED DOSE, Q2WK
     Route: 065
     Dates: start: 20190306, end: 20190306
  22. NIVOLUMAB [Suspect]
     Active Substance: NIVOLUMAB
     Dosage: 240 UNSPECIFIED DOSE, Q2WK
     Route: 065
     Dates: start: 20200630, end: 20200630
  23. DIPROSONE [BETAMETHASONE SODIUM PHOSPHATE] [Concomitant]
     Indication: PRODUCT USED FOR UNKNOWN INDICATION
     Dosage: 1 APPLICATION, QD
     Route: 061
     Dates: start: 20180711
  24. AUGMENTIN [Concomitant]
     Active Substance: AMOXICILLIN\CLAVULANATE POTASSIUM
     Indication: BRONCHITIS
     Dosage: 1 GRAM, TID
     Route: 048
     Dates: start: 20200713, end: 20200719
  25. NIVOLUMAB [Suspect]
     Active Substance: NIVOLUMAB
     Dosage: 300 UNSPECIFIED DOSE, Q2WK
     Route: 065
     Dates: start: 20180726, end: 20180726
  26. NIVOLUMAB [Suspect]
     Active Substance: NIVOLUMAB
     Dosage: 300 UNSPECIFIED DOSE, Q2WK
     Route: 065
     Dates: start: 20180808, end: 20180808
  27. NIVOLUMAB [Suspect]
     Active Substance: NIVOLUMAB
     Dosage: 300 UNSPECIFIED DOSE, Q2WK
     Route: 065
     Dates: start: 20180919, end: 20180919
  28. NIVOLUMAB [Suspect]
     Active Substance: NIVOLUMAB
     Dosage: 310 UNSPECIFIED DOSE, Q2WK
     Route: 065
     Dates: start: 20190220, end: 20190220
  29. NIVOLUMAB [Suspect]
     Active Substance: NIVOLUMAB
     Dosage: 240 UNSPECIFIED DOSE, Q2WK
     Route: 065
     Dates: start: 20200713, end: 20200713
  30. LEVOTHYROX [Concomitant]
     Active Substance: LEVOTHYROXINE
     Indication: PRODUCT USED FOR UNKNOWN INDICATION
     Dosage: 50 MICROGRAM, QD
     Route: 048
     Dates: start: 20180919, end: 20181016
  31. EXACYL [Concomitant]
     Active Substance: TRANEXAMIC ACID
     Indication: HAEMOPTYSIS
     Dosage: 1 VAIL, TID
     Route: 048
     Dates: start: 20180613
  32. INNOHEP [Concomitant]
     Active Substance: TINZAPARIN SODIUM
     Indication: PULMONARY VENOUS THROMBOSIS
     Dosage: 18000 INTERNATIONAL UNIT, QD
     Route: 058
     Dates: start: 20190507
  33. SALBUTAMOL [Concomitant]
     Active Substance: ALBUTEROL
     Indication: BRONCHITIS
     Dosage: 3 ABSENT
     Route: 048
     Dates: start: 20200713, end: 20200719
  34. NIVOLUMAB [Suspect]
     Active Substance: NIVOLUMAB
     Dosage: 300 UNSPECIFIED DOSE, Q2WK
     Route: 065
     Dates: start: 20180627, end: 20180627
  35. NIVOLUMAB [Suspect]
     Active Substance: NIVOLUMAB
     Dosage: 310 UNSPECIFIED DOSE, Q2WK
     Route: 065
     Dates: start: 20181004, end: 20181004
  36. NIVOLUMAB [Suspect]
     Active Substance: NIVOLUMAB
     Dosage: 310 UNSPECIFIED DOSE, Q2WK
     Route: 065
     Dates: start: 20181031, end: 20181031
  37. NIVOLUMAB [Suspect]
     Active Substance: NIVOLUMAB
     Dosage: 310 UNSPECIFIED DOSE, Q2WK
     Route: 065
     Dates: start: 20181128, end: 20181128
  38. NIVOLUMAB [Suspect]
     Active Substance: NIVOLUMAB
     Dosage: 280 UNSPECIFIED DOSE, Q2WK
     Dates: start: 20190710, end: 20190710
  39. NIVOLUMAB [Suspect]
     Active Substance: NIVOLUMAB
     Dosage: 270 UNSPECIFIED DOSE, Q2WK
     Route: 065
     Dates: start: 20190724, end: 20190724
  40. NIVOLUMAB [Suspect]
     Active Substance: NIVOLUMAB
     Dosage: 240 UNSPECIFIED DOSE, Q3WK
     Dates: start: 20200602, end: 20200602
  41. DEXERYL [GLYCEROL;PARAFFIN, LIQUID;WHITE SOFT PARAFFIN] [Concomitant]
     Active Substance: GLYCERIN\MINERAL OIL\PETROLATUM
     Indication: PRODUCT USED FOR UNKNOWN INDICATION
     Dosage: 1 APPLICATION, QD
     Route: 061
     Dates: start: 20181004
  42. CLOBEX [CLOBETASOL PROPIONATE] [Concomitant]
     Indication: PRODUCT USED FOR UNKNOWN INDICATION
     Dosage: 1 PER NEEDED
     Route: 061
     Dates: start: 20190212
  43. MOVICOL [Concomitant]
     Active Substance: POLYETHYLENE GLYCOL 3350\POTASSIUM CHLORIDE\SODIUM BICARBONATE\SODIUM CHLORIDE
     Indication: CONSTIPATION
     Dosage: 2 BAG, QD
     Route: 048
  44. AUGMENTINE [AMOXICILLIN;CLAVULANIC ACID] [Concomitant]
     Active Substance: AMOXICILLIN\CLAVULANIC ACID
     Indication: PRODUCT USED FOR UNKNOWN INDICATION
     Dosage: 10 GRAM, TID
     Route: 048
     Dates: start: 20200625
  45. NIVOLUMAB [Suspect]
     Active Substance: NIVOLUMAB
     Dosage: 310 UNSPECIFIED DOSE, Q2WK
     Route: 065
     Dates: start: 20181017, end: 20181017
  46. NIVOLUMAB [Suspect]
     Active Substance: NIVOLUMAB
     Dosage: 310 UNSPECIFIED DOSE, Q2WK
     Route: 065
     Dates: start: 20181226, end: 20181226
  47. NIVOLUMAB [Suspect]
     Active Substance: NIVOLUMAB
     Dosage: 310 UNSPECIFIED DOSE, Q2WK
     Route: 065
     Dates: start: 20190206, end: 20190206
  48. NIVOLUMAB [Suspect]
     Active Substance: NIVOLUMAB
     Dosage: 300 UNSPECIFIED DOSE, Q2WK
     Route: 065
     Dates: start: 20190403, end: 20190403
  49. LEVOTHYROX [Concomitant]
     Active Substance: LEVOTHYROXINE
     Dosage: 120 MICROGRAM, QD
     Route: 048
     Dates: start: 20200602
  50. KARDEGIC [Concomitant]
     Active Substance: ASPIRIN DL-LYSINE
     Indication: PRODUCT USED FOR UNKNOWN INDICATION
     Dosage: 75 MILLIGRAM, QD
     Route: 048
     Dates: start: 2016
  51. DELURSAN [Concomitant]
     Active Substance: URSODIOL
     Indication: PRODUCT USED FOR UNKNOWN INDICATION
     Dosage: 500 MILLIGRAM, BID
     Route: 048
  52. SOLUPRED [PREDNISOLONE] [Concomitant]
     Active Substance: PREDNISOLONE
     Dosage: 10 MILLIGRAM
     Route: 048
     Dates: start: 20200528, end: 202006
  53. NIVOLUMAB [Suspect]
     Active Substance: NIVOLUMAB
     Indication: MALIGNANT MELANOMA
     Dosage: 300 UNSPECIFIED DOSE, Q2WK
     Route: 065
     Dates: start: 20180530, end: 20180530
  54. NIVOLUMAB [Suspect]
     Active Substance: NIVOLUMAB
     Dosage: 300 UNSPECIFIED DOSE, Q2WK
     Route: 065
     Dates: start: 20190417, end: 20190417
  55. NIVOLUMAB [Suspect]
     Active Substance: NIVOLUMAB
     Dosage: 260 UNSPECIFIED DOSE, Q2WK
     Route: 065
     Dates: start: 20190821, end: 20190821
  56. EXACYL [Concomitant]
     Active Substance: TRANEXAMIC ACID
     Dosage: 1 VAIL, TID
     Dates: start: 20190501, end: 20190501
  57. DECTANCYL [Concomitant]
     Active Substance: DEXAMETHASONE
     Indication: NAUSEA
     Dosage: 0.5 MILLIGRAM, BID
     Route: 048
     Dates: start: 20200518
  58. NIVOLUMAB [Suspect]
     Active Substance: NIVOLUMAB
     Dosage: 310 UNSPECIFIED DOSE, Q2WK
     Route: 065
     Dates: start: 20190109, end: 20190109
  59. NIVOLUMAB [Suspect]
     Active Substance: NIVOLUMAB
     Dosage: 310 UNSPECIFIED DOSE, Q2WK
     Route: 065
     Dates: start: 20190123, end: 20190123
  60. NIVOLUMAB [Suspect]
     Active Substance: NIVOLUMAB
     Dosage: 300 UNSPECIFIED DOSE, Q2WK
     Route: 065
     Dates: start: 20190510, end: 20190510
  61. NIVOLUMAB [Suspect]
     Active Substance: NIVOLUMAB
     Dosage: 300 UNSPECIFIED DOSE, Q2WK
     Route: 065
     Dates: start: 20190626, end: 20190626
  62. NIVOLUMAB [Suspect]
     Active Substance: NIVOLUMAB
     Dosage: 260 UNSPECIFIED DOSE, Q2WK
     Route: 065
     Dates: start: 20190904, end: 20190904
  63. LEVOTHYROX [Concomitant]
     Active Substance: LEVOTHYROXINE
     Dosage: 75 MICROGRAM, QD
     Route: 048
     Dates: start: 20181017, end: 20181030
  64. LEVOTHYROX [Concomitant]
     Active Substance: LEVOTHYROXINE
     Dosage: 100 MICROGRAM, QD
     Route: 048
     Dates: start: 20181031, end: 20181108
  65. LEVOTHYROX [Concomitant]
     Active Substance: LEVOTHYROXINE
     Dosage: 150 MICROGRAM, QD
     Route: 048
     Dates: start: 20181128, end: 20190820
  66. AERIUS (DESLORATADINE) [Concomitant]
     Active Substance: DESLORATADINE
     Indication: PRODUCT USED FOR UNKNOWN INDICATION
     Dosage: 5 MILLIGRAM, PER NEEDED
     Route: 048
     Dates: start: 20180711
  67. MICROLAX [MACROGOL;SODIUM CITRATE;SODIUM LAURYL SULFATE;SORBIC ACID] [Concomitant]
     Indication: CONSTIPATION
     Dosage: 1 PER NEEDED
     Route: 048
     Dates: start: 20190807

REACTIONS (3)
  - Pneumonitis [Recovered/Resolved]
  - Hypotension [Unknown]
  - Off label use [Unknown]

NARRATIVE: CASE EVENT DATE: 20200623
